FAERS Safety Report 15810796 (Version 1)
Quarter: 2019Q1

REPORT INFORMATION
  Report Type: Spontaneous
  Country: GB (occurrence: GB)
  Receive Date: 20190111
  Receipt Date: 20190111
  Transmission Date: 20190417
  Serious: Yes (Other)
  Sender: FDA-Public Use
  Company Number: GB-TEVA-2019-GB-997130

PATIENT
  Age: 13 Year
  Sex: Female

DRUGS (4)
  1. AMOXICILLIN. [Concomitant]
     Active Substance: AMOXICILLIN
     Dosage: 40 ML DAILY;
     Dates: start: 20181207, end: 20181214
  2. MOMETASONE [Concomitant]
     Active Substance: MOMETASONE
     Dosage: USE ONE OR TWO SPRAY ONCE DAILY FOR UP TO 8 WEEKS.
     Dates: start: 20131007
  3. AMOXICILLIN. [Suspect]
     Active Substance: AMOXICILLIN
     Dates: start: 20181215, end: 20181217
  4. PARACETAMOL [Concomitant]
     Active Substance: ACETAMINOPHEN
     Dosage: 15ML TO BE TAKEN 4 TIMES DAILY.
     Dates: start: 20181207, end: 20181212

REACTIONS (1)
  - Rash macular [Recovered/Resolved]

NARRATIVE: CASE EVENT DATE: 20181215
